FAERS Safety Report 14561451 (Version 1)
Quarter: 2018Q1

REPORT INFORMATION
  Report Type: Spontaneous
  Country: CA (occurrence: CA)
  Receive Date: 20180222
  Receipt Date: 20180222
  Transmission Date: 20180509
  Serious: Yes (Other)
  Sender: FDA-Public Use
  Company Number: CA-TEVA-2018-CA-863637

PATIENT
  Age: 21 Year
  Sex: Female

DRUGS (2)
  1. PLAN B [Suspect]
     Active Substance: LEVONORGESTREL
     Route: 048
     Dates: start: 20180215
  2. ALESSE 28 [Concomitant]
     Active Substance: ETHINYL ESTRADIOL\LEVONORGESTREL
     Indication: ORAL CONTRACEPTION

REACTIONS (5)
  - Dyspnoea [Unknown]
  - Anxiety [Unknown]
  - Feeling abnormal [Unknown]
  - Heart rate increased [Not Recovered/Not Resolved]
  - Presyncope [Unknown]
